FAERS Safety Report 22010011 (Version 10)
Quarter: 2024Q3

REPORT INFORMATION
  Report Type: Report from Study
  Country: JP (occurrence: JP)
  Receive Date: 20230220
  Receipt Date: 20240708
  Transmission Date: 20241017
  Serious: Yes (Hospitalization, Other)
  Sender: ARGENX BVBA
  Company Number: JP-ARGENX-2023-ARGX-JP000495

PATIENT
  Age: 45 Year
  Sex: Female
  Weight: 74 kg

DRUGS (30)
  1. EFGARTIGIMOD ALFA [Suspect]
     Active Substance: EFGARTIGIMOD ALFA
     Indication: Myasthenia gravis
     Dosage: 740 MG, 1/WEEK
     Route: 042
     Dates: start: 20220906, end: 20220927
  2. EFGARTIGIMOD ALFA [Suspect]
     Active Substance: EFGARTIGIMOD ALFA
     Dosage: 740 MG, 1/WEEK
     Route: 042
     Dates: start: 20221108, end: 20221122
  3. EFGARTIGIMOD ALFA [Suspect]
     Active Substance: EFGARTIGIMOD ALFA
     Dosage: 740 MG, 1/WEEK
     Route: 042
     Dates: start: 20230228, end: 20230314
  4. EFGARTIGIMOD ALFA [Suspect]
     Active Substance: EFGARTIGIMOD ALFA
     Dosage: 740 MG
     Route: 042
     Dates: start: 20230424, end: 20230508
  5. EFGARTIGIMOD ALFA [Suspect]
     Active Substance: EFGARTIGIMOD ALFA
     Dosage: 740 MG
     Route: 042
     Dates: start: 20230612, end: 20230626
  6. EFGARTIGIMOD ALFA [Suspect]
     Active Substance: EFGARTIGIMOD ALFA
     Dosage: 740 MG
     Route: 042
     Dates: start: 20230724, end: 20230807
  7. EFGARTIGIMOD ALFA [Suspect]
     Active Substance: EFGARTIGIMOD ALFA
     Dosage: 740 MG
     Route: 042
     Dates: start: 20230914, end: 20230928
  8. EFGARTIGIMOD ALFA [Suspect]
     Active Substance: EFGARTIGIMOD ALFA
     Dosage: 740 MG
     Route: 042
     Dates: start: 20231127, end: 20231211
  9. EFGARTIGIMOD ALFA [Suspect]
     Active Substance: EFGARTIGIMOD ALFA
     Dosage: 740 MG
     Route: 042
     Dates: start: 20240115, end: 20240129
  10. EFGARTIGIMOD ALFA [Suspect]
     Active Substance: EFGARTIGIMOD ALFA
     Dosage: 740 MG
     Route: 042
     Dates: start: 20240304, end: 20240318
  11. PREDONINE [Suspect]
     Active Substance: PREDNISOLONE
     Indication: Myasthenia gravis
     Dosage: 20 MG
     Route: 048
     Dates: start: 20220806, end: 20220906
  12. PREDONINE [Suspect]
     Active Substance: PREDNISOLONE
     Dosage: 17.5 MG
     Route: 048
     Dates: start: 20220907, end: 20220920
  13. PREDONINE [Suspect]
     Active Substance: PREDNISOLONE
     Dosage: 15 MG
     Route: 048
     Dates: start: 20220921, end: 20221101
  14. PREDONINE [Suspect]
     Active Substance: PREDNISOLONE
     Dosage: 12.5 MG
     Route: 048
     Dates: start: 20221102, end: 20221213
  15. PREDONINE [Suspect]
     Active Substance: PREDNISOLONE
     Dosage: 10 MG
     Route: 048
     Dates: start: 20221214, end: 20230213
  16. PREDONINE [Suspect]
     Active Substance: PREDNISOLONE
     Dosage: 20 MG
     Route: 048
     Dates: start: 20230214, end: 20230307
  17. PREDONINE [Suspect]
     Active Substance: PREDNISOLONE
     Dosage: 15 MG
     Route: 048
     Dates: start: 20230421, end: 20240303
  18. PREDONINE [Suspect]
     Active Substance: PREDNISOLONE
     Dosage: 12.5 MG
     Route: 048
     Dates: start: 20240304
  19. MESTINON [Concomitant]
     Active Substance: PYRIDOSTIGMINE BROMIDE
     Indication: Myasthenia gravis
     Dosage: 180 MG/DAY
     Route: 048
     Dates: start: 20220806
  20. TACROLIMUS [Concomitant]
     Active Substance: TACROLIMUS
     Indication: Myasthenia gravis
     Dosage: 3 MG/DAY
     Route: 048
     Dates: start: 20220806, end: 20230821
  21. VEKLURY [Concomitant]
     Active Substance: REMDESIVIR
     Indication: Product used for unknown indication
     Dosage: 200 MG
     Route: 041
     Dates: start: 20230213, end: 20230213
  22. VEKLURY [Concomitant]
     Active Substance: REMDESIVIR
     Dosage: 100 MG
     Route: 041
     Dates: start: 20230214, end: 20230215
  23. RYBELSUS [Concomitant]
     Active Substance: SEMAGLUTIDE
     Indication: Product used for unknown indication
     Dosage: 3 MG/DAY
     Route: 048
     Dates: start: 20230217
  24. RABEPRAZOLE [Concomitant]
     Active Substance: RABEPRAZOLE
     Indication: Product used for unknown indication
     Dosage: 10 MG/DAY
     Route: 048
     Dates: start: 20220806
  25. ALENDRONATE [Concomitant]
     Active Substance: ALENDRONATE SODIUM
     Indication: Product used for unknown indication
     Dosage: 35 MG, PER WEEK
     Route: 048
     Dates: start: 20220806
  26. SULFAMETHOXAZOLE\TRIMETHOPRIM [Concomitant]
     Active Substance: SULFAMETHOXAZOLE\TRIMETHOPRIM
     Indication: Product used for unknown indication
     Dosage: 1 DF, EVERY OTHER DAY
     Route: 048
     Dates: start: 20220806
  27. SODIUM FERROUS CITRATE [Concomitant]
     Active Substance: SODIUM FERROUS CITRATE
     Indication: Product used for unknown indication
     Dosage: 100 MG
     Route: 048
     Dates: start: 20221214, end: 20230207
  28. SODIUM FERROUS CITRATE [Concomitant]
     Active Substance: SODIUM FERROUS CITRATE
     Dosage: 50 MG/DAY
     Route: 048
     Dates: start: 20230208, end: 20230419
  29. NEORAL [Concomitant]
     Active Substance: CYCLOSPORINE
     Indication: Myasthenia gravis
     Dosage: 350 MG/DAY
     Route: 048
     Dates: start: 20230808
  30. NEORAL [Concomitant]
     Active Substance: CYCLOSPORINE
     Dosage: 100 MG/DAY
     Route: 048

REACTIONS (14)
  - Myasthenia gravis [Recovering/Resolving]
  - Steroid diabetes [Not Recovered/Not Resolved]
  - COVID-19 [Recovered/Resolved]
  - Myasthenia gravis [Recovered/Resolved]
  - Myasthenia gravis [Recovered/Resolved]
  - Myasthenia gravis [Recovered/Resolved]
  - Myasthenia gravis [Recovered/Resolved]
  - Myasthenia gravis [Recovered/Resolved]
  - Myasthenia gravis [Recovered/Resolved]
  - Myasthenia gravis [Recovered/Resolved]
  - Liver disorder [Recovering/Resolving]
  - Product dose omission issue [Unknown]
  - Product dose omission issue [Unknown]
  - Product dose omission issue [Unknown]

NARRATIVE: CASE EVENT DATE: 20230207
